FAERS Safety Report 5966088-1 (Version None)
Quarter: 2008Q4

REPORT INFORMATION
  Report Type: 
  Country: None (occurrence: None)
  Receive Date: 20081125
  Receipt Date: 20081112
  Transmission Date: 20090506
  Serious: Yes (Other)
  Sender: FDA-Public Use
  Company Number: US-ELI_LILLY_AND_COMPANY-US200811003248

PATIENT
  Age: 70 Year
  Sex: Female

DRUGS (4)
  1. GEMZAR [Suspect]
     Indication: ADENOCARCINOMA PANCREAS
     Dosage: UNK, OTHER
     Dates: start: 20060911, end: 20080212
  2. TAXOTERE [Concomitant]
     Indication: ADENOCARCINOMA PANCREAS
     Dates: start: 20060911, end: 20070307
  3. CAPECITABINE [Concomitant]
     Indication: ADENOCARCINOMA PANCREAS
     Dates: start: 20060911, end: 20071001
  4. WARFARIN SODIUM [Concomitant]
     Indication: ATRIAL FIBRILLATION
     Dosage: 7.5 MG, WEEKLY (1/W)

REACTIONS (4)
  - ALANINE AMINOTRANSFERASE INCREASED [None]
  - ASPARTATE AMINOTRANSFERASE INCREASED [None]
  - MALIGNANT NEOPLASM PROGRESSION [None]
  - POTENTIATING DRUG INTERACTION [None]
